FAERS Safety Report 21932601 (Version 1)
Quarter: 2023Q1

REPORT INFORMATION
  Report Type: Spontaneous
  Country: US (occurrence: None)
  Receive Date: 20230131
  Receipt Date: 20230131
  Transmission Date: 20230418
  Serious: No
  Sender: FDA-Public Use
  Company Number: None

PATIENT

DRUGS (1)
  1. POSACONAZOLE [Suspect]
     Active Substance: POSACONAZOLE

REACTIONS (6)
  - Product design issue [None]
  - Product preparation issue [None]
  - Circumstance or information capable of leading to device use error [None]
  - Wrong dose [None]
  - Expired product administered [None]
  - Incorrect route of product administration [None]
